FAERS Safety Report 20765848 (Version 11)
Quarter: 2025Q4

REPORT INFORMATION
  Report Type: Report from Study
  Country: US (occurrence: US)
  Receive Date: 20220428
  Receipt Date: 20251221
  Transmission Date: 20260118
  Serious: No
  Sender: PFIZER
  Company Number: US-PFIZER INC-202200403682

PATIENT
  Age: 81 Year
  Sex: Female

DRUGS (6)
  1. IBRANCE [Suspect]
     Active Substance: PALBOCICLIB
     Indication: Breast cancer female
     Dosage: 75 MG, CYCLIC (DAYS 1-21 OF EACH 28 DAY CYCLE)
     Route: 048
  2. IBRANCE [Suspect]
     Active Substance: PALBOCICLIB
     Dosage: 125 MG, CYCLIC (TAKE 1 TABLET DAILY ON DAYS 1-21 OF 28 DAY CYCLE)
     Route: 048
  3. IBRANCE [Suspect]
     Active Substance: PALBOCICLIB
     Dosage: 75 MG, CYCLIC (TAKE 1 TABLET FOR 21 DAYS ON AND 7 DAYS OFF)
     Route: 048
  4. IBRANCE [Suspect]
     Active Substance: PALBOCICLIB
     Dosage: 75 MG, CYCLIC (75 MG DAILY AT THE SAME TIME DAILY ON DAYS 1-21 OF EACH 28 DAY CYCLE. SWALLOW WHOLE)
     Route: 048
  5. NEURONTIN [Concomitant]
     Active Substance: GABAPENTIN
     Dosage: 200 MG, 1X/DAY (TAKE 2 CAPSULES (200 MG TOTAL), NIGHTLY))
     Route: 048
  6. NORVASC [Concomitant]
     Active Substance: AMLODIPINE BESYLATE
     Dosage: 5 MG, DAILY (1/2 TABLET EVERYDAY)

REACTIONS (4)
  - Glucose tolerance impaired [Unknown]
  - Ageusia [Unknown]
  - Stress [Unknown]
  - Product dispensing error [Unknown]
